FAERS Safety Report 6890124-1 (Version None)
Quarter: 2010Q3

REPORT INFORMATION
  Report Type: 
  Country: None (occurrence: None)
  Receive Date: 20100730
  Receipt Date: 20080806
  Transmission Date: 20110219
  Serious: No
  Sender: FDA-Public Use
  Company Number: US-PFIZER INC-2008066592

PATIENT
  Sex: Female
  Weight: 82.55 kg

DRUGS (2)
  1. LIPITOR [Suspect]
     Indication: BLOOD CHOLESTEROL INCREASED
     Dates: start: 20080101
  2. AMLODIPINE BESYLATE/VALSARTAN [Concomitant]
     Indication: BLOOD PRESSURE ABNORMAL

REACTIONS (1)
  - PAIN IN EXTREMITY [None]
